FAERS Safety Report 7612149-0 (Version None)
Quarter: 2011Q3

REPORT INFORMATION
  Report Type: 
  Country: None (occurrence: None)
  Receive Date: 20110715
  Receipt Date: 20110708
  Transmission Date: 20111222
  Serious: Yes (Hospitalization, Other)
  Sender: FDA-Public Use
  Company Number: US-ABBOTT-11P-163-0838189-00

PATIENT
  Sex: Female
  Weight: 68.1 kg

DRUGS (12)
  1. PLAVIX [Suspect]
     Indication: CAROTID ARTERY OCCLUSION
     Dates: end: 20110501
  2. VITAMIN B-12 [Concomitant]
     Indication: PRODUCT USED FOR UNKNOWN INDICATION
  3. OSCAL D [Concomitant]
     Indication: PRODUCT USED FOR UNKNOWN INDICATION
  4. PRILOSEC [Concomitant]
     Indication: GASTRIC ULCER
     Dates: start: 20110501
  5. HUMIRA [Suspect]
     Route: 058
     Dates: end: 20110201
  6. NAPROXEN (ALEVE) [Suspect]
     Indication: PRODUCT USED FOR UNKNOWN INDICATION
     Dates: end: 20110501
  7. LOPRESSOR [Concomitant]
     Indication: HYPERTENSION
  8. TYLENOL-500 [Concomitant]
     Indication: PAIN
  9. HUMIRA [Suspect]
     Indication: RHEUMATOID ARTHRITIS
     Route: 058
     Dates: start: 20110601
  10. LEVOTHYROXINE [Concomitant]
     Indication: PRODUCT USED FOR UNKNOWN INDICATION
  11. ASPIRIN [Suspect]
     Indication: PRODUCT USED FOR UNKNOWN INDICATION
     Dates: end: 20110501
  12. HUMIRA [Suspect]
     Route: 058
     Dates: start: 20110201, end: 20110501

REACTIONS (9)
  - MALAISE [None]
  - HAEMOGLOBIN DECREASED [None]
  - CONJUNCTIVITIS INFECTIVE [None]
  - RHEUMATOID ARTHRITIS [None]
  - INFLUENZA [None]
  - UPPER RESPIRATORY TRACT INFECTION [None]
  - OROPHARYNGEAL PAIN [None]
  - GASTRIC ULCER [None]
  - EAR PAIN [None]
